FAERS Safety Report 19829569 (Version 1)
Quarter: 2021Q3

REPORT INFORMATION
  Report Type: Spontaneous
  Country: NL (occurrence: NL)
  Receive Date: 20210914
  Receipt Date: 20210914
  Transmission Date: 20211014
  Serious: Yes (Other)
  Sender: FDA-Public Use
  Company Number: NL-MYLANLABS-2021M1062419

PATIENT
  Age: 29 Month
  Sex: Male

DRUGS (16)
  1. ISOTRETINOIN. [Suspect]
     Active Substance: ISOTRETINOIN
     Indication: NEUROBLASTOMA
     Dosage: (160 MG/M2, OD ON 14 CONSECUTIVE DAYS
     Route: 065
  2. ISOTRETINOIN. [Suspect]
     Active Substance: ISOTRETINOIN
     Dosage: (160 MG/M2, OD ON 14 CONSECUTIVE DAYS
     Route: 065
  3. ISOTRETINOIN. [Suspect]
     Active Substance: ISOTRETINOIN
     Dosage: (160 MG/M2, OD ON 14 CONSECUTIVE DAYS
     Route: 065
  4. INTERLEUKIN?2 [Suspect]
     Active Substance: ALDESLEUKIN
     Indication: NEUROBLASTOMA
     Dosage: (3.0 X 10^6 IU/M2/DAY ON 4 CONSECUTIVE DAYS BY IV CONTINUOUS INFUSION IN WEEK 1
     Route: 042
  5. QARZIBA [Suspect]
     Active Substance: DINUTUXIMAB BETA
     Dosage: 20 MG/M2 GIVEN BY 8?HOUR INFUSION (MAX 16 HOURS) ON 5 CONSECUTIVE DAYS,
     Route: 042
  6. QARZIBA [Suspect]
     Active Substance: DINUTUXIMAB BETA
     Dosage: 20 MG/M2 GIVEN BY 8?HOUR INFUSION (MAX 16 HOURS) ON 5 CONSECUTIVE DAYS,
     Route: 042
  7. SARGRAMOSTIM [Suspect]
     Active Substance: SARGRAMOSTIM
     Dosage: 250 MICROGRAM/SQ. METER  (METER ON 14 CONSECUTIVE DAYS BY THE SUBCUTANEOUS ROUTE
     Route: 058
  8. ISOTRETINOIN. [Suspect]
     Active Substance: ISOTRETINOIN
     Dosage: 160 MG/M2, OD ON 14 CONSECUTIVE DAYS
     Route: 065
  9. ISOTRETINOIN. [Suspect]
     Active Substance: ISOTRETINOIN
     Dosage: 160 MG/M2, OD ON 14 CONSECUTIVE DAYS
     Route: 065
  10. QARZIBA [Suspect]
     Active Substance: DINUTUXIMAB BETA
     Indication: NEUROBLASTOMA
     Dosage: 20 MG/M2 GIVEN BY 8?HOUR INFUSION (MAX 16 HOURS) ON 5 CONSECUTIVE DAYS,
     Route: 042
  11. QARZIBA [Suspect]
     Active Substance: DINUTUXIMAB BETA
     Dosage: 20 MG/M2 GIVEN BY 8?HOUR INFUSION (MAX 16 HOURS) ON 5 CONSECUTIVE DAYS,
     Route: 042
  12. SARGRAMOSTIM [Suspect]
     Active Substance: SARGRAMOSTIM
     Dosage: 250 MICROGRAM/SQ. METER (METER ON 14 CONSECUTIVE DAYS BY THE SUBCUTANEOUS ROUTE
     Route: 058
  13. QARZIBA [Suspect]
     Active Substance: DINUTUXIMAB BETA
     Dosage: 20 MG/M2 GIVEN BY 8?HOUR INFUSION (MAX 16 HOURS) ON 5 CONSECUTIVE DAYS,
     Route: 042
  14. SARGRAMOSTIM [Suspect]
     Active Substance: SARGRAMOSTIM
     Indication: NEUROBLASTOMA
     Dosage: 250 MICROGRAM/SQ. METER (14 CONSECUTIVE DAYS BY THE SUBCUTANEOUS ROUTE
     Route: 058
  15. ISOTRETINOIN. [Suspect]
     Active Substance: ISOTRETINOIN
     Dosage: (160 MG/M2, OD ON 14 CONSECUTIVE DAYS
     Route: 065
  16. INTERLEUKIN?2 [Suspect]
     Active Substance: ALDESLEUKIN
     Dosage: 4.5 X 10^6 IU/M2/DAY ON 5 CONSECUTIVE DAYS BY INTRAVENOUS (IV) CONTINUOUS INFUSION IN WEEK 2
     Route: 042

REACTIONS (1)
  - Pain [Unknown]
